FAERS Safety Report 6551189-X (Version None)
Quarter: 2010Q1

REPORT INFORMATION
  Report Type: 
  Country: None (occurrence: None)
  Receive Date: 20100121
  Receipt Date: 20100108
  Transmission Date: 20100710
  Serious: Yes (Life-Threatening, Hospitalization, Disabling, Other)
  Sender: FDA-Public Use
  Company Number: 2008AL002145

PATIENT
  Age: 44 Year
  Sex: Female

DRUGS (2)
  1. MIRTAZAPINE [Suspect]
     Indication: DEPRESSION
     Dosage: 45 MG;QID;PO
     Route: 048
     Dates: start: 20080123, end: 20080212
  2. RISPERIDONE [Concomitant]

REACTIONS (11)
  - BEDRIDDEN [None]
  - BLOOD PRESSURE FLUCTUATION [None]
  - CONFUSIONAL STATE [None]
  - DRUG TOLERANCE DECREASED [None]
  - HYPERTONIA [None]
  - LOSS OF CONSCIOUSNESS [None]
  - MOBILITY DECREASED [None]
  - NEUROLEPTIC MALIGNANT SYNDROME [None]
  - NUCHAL RIGIDITY [None]
  - PSYCHOMOTOR RETARDATION [None]
  - SEROTONIN SYNDROME [None]
